FAERS Safety Report 9834544 (Version 2)
Quarter: 2014Q1

REPORT INFORMATION
  Report Type: Report from Study
  Country: IN (occurrence: IN)
  Receive Date: 20140122
  Receipt Date: 20140212
  Transmission Date: 20141002
  Serious: Yes (Hospitalization, Other)
  Sender: FDA-Public Use
  Company Number: PHHY2014IN006445

PATIENT
  Age: 67 Year
  Sex: Female

DRUGS (2)
  1. ACLASTA [Suspect]
     Indication: OSTEOPOROSIS
     Dosage: 5 MG / 100 ML/ YEAR
     Route: 042
     Dates: start: 20130112
  2. OLTER//CYPROTERONE ACETATE [Concomitant]
     Indication: BONE DISORDER
     Dosage: UNK UKN, UNK

REACTIONS (4)
  - Upper limb fracture [Recovered/Resolved]
  - Fall [Unknown]
  - Periarthritis [Not Recovered/Not Resolved]
  - Bone disorder [Not Recovered/Not Resolved]
